FAERS Safety Report 16003407 (Version 1)
Quarter: 2019Q1

REPORT INFORMATION
  Report Type: Spontaneous
  Country: GB (occurrence: GB)
  Receive Date: 20190226
  Receipt Date: 20190226
  Transmission Date: 20190418
  Serious: Yes (Death)
  Sender: FDA-Public Use
  Company Number: GB-DEXPHARM-20190142

PATIENT
  Sex: Male

DRUGS (4)
  1. CODEIN PHOSPHATE [Suspect]
     Active Substance: CODEINE PHOSPHATE
  2. DIAZEPAM. [Suspect]
     Active Substance: DIAZEPAM
  3. DICLOFENAC [Suspect]
     Active Substance: DICLOFENAC
  4. VENLAFAXINE NON DEXCEL PRODUCT [Suspect]
     Active Substance: VENLAFAXINE HYDROCHLORIDE

REACTIONS (2)
  - Completed suicide [Fatal]
  - Drug interaction [Fatal]

NARRATIVE: CASE EVENT DATE: 20060101
